FAERS Safety Report 10085250 (Version 1)
Quarter: 2014Q2

REPORT INFORMATION
  Report Type: Spontaneous
  Country: US (occurrence: US)
  Receive Date: 20140417
  Receipt Date: 20140417
  Transmission Date: 20141212
  Serious: Yes (Other)
  Sender: FDA-Public Use
  Company Number: PHHY2014US043097

PATIENT
  Age: 57 Year
  Sex: Male

DRUGS (6)
  1. AMPICILLIN [Suspect]
     Indication: ENTEROCOCCAL INFECTION
  2. CEFTRIAXONE [Concomitant]
     Indication: ESCHERICHIA BACTERAEMIA
  3. DALFOPRISTIN W/QUINUPRISTIN [Concomitant]
     Indication: ESCHERICHIA BACTERAEMIA
     Dosage: 660 MG, Q8H
     Route: 042
  4. GENTAMICIN [Concomitant]
     Indication: ESCHERICHIA BACTERAEMIA
  5. GENTAMICIN [Concomitant]
     Indication: STAPHYLOCOCCAL INFECTION
  6. VANCOMYCIN [Concomitant]
     Indication: ENTEROCOCCAL INFECTION

REACTIONS (2)
  - Nephritis allergic [Unknown]
  - Tubulointerstitial nephritis [Unknown]
